FAERS Safety Report 17829776 (Version 4)
Quarter: 2024Q4

REPORT INFORMATION
  Report Type: Report from Study
  Country: US (occurrence: US)
  Receive Date: 20200527
  Receipt Date: 20241218
  Transmission Date: 20250115
  Serious: Yes (Other)
  Sender: TAKEDA
  Company Number: US-SHIRE-US202017365

PATIENT
  Age: 69 Year
  Sex: Male

DRUGS (19)
  1. VELAGLUCERASE ALFA [Suspect]
     Active Substance: VELAGLUCERASE ALFA
     Indication: Gaucher^s disease
     Dosage: 400 INTERNATIONAL UNIT, Q2WEEKS
     Dates: start: 20180208
  2. VELAGLUCERASE ALFA [Suspect]
     Active Substance: VELAGLUCERASE ALFA
     Dosage: 4000 INTERNATIONAL UNIT, Q2WEEKS
     Dates: start: 20180209
  3. VELAGLUCERASE ALFA [Suspect]
     Active Substance: VELAGLUCERASE ALFA
     Dosage: 3200 INTERNATIONAL UNIT, Q2WEEKS
  4. VELAGLUCERASE ALFA [Suspect]
     Active Substance: VELAGLUCERASE ALFA
     Dosage: UNK UNK, 2/MONTH
  5. ASPIRIN [Concomitant]
     Active Substance: ASPIRIN
     Dosage: UNK
  6. CLOPIDOGREL [Concomitant]
     Active Substance: CLOPIDOGREL BISULFATE
     Dosage: UNK
  7. CRESTOR [Concomitant]
     Active Substance: ROSUVASTATIN CALCIUM
     Dosage: UNK
  8. EZETIMIBE [Concomitant]
     Active Substance: EZETIMIBE
     Dosage: UNK
  9. FLUCONAZOLE [Concomitant]
     Active Substance: FLUCONAZOLE
     Dosage: UNK
  10. LISINOPRIL [Concomitant]
     Active Substance: LISINOPRIL
     Dosage: UNK
  11. PLAVIX [Concomitant]
     Active Substance: CLOPIDOGREL BISULFATE
     Dosage: UNK
  12. ROSUVASTATIN [Concomitant]
     Active Substance: ROSUVASTATIN
     Dosage: UNK
  13. Triamcinolon [Concomitant]
     Dosage: UNK
  14. HERBALS\TURMERIC [Concomitant]
     Active Substance: HERBALS\TURMERIC
     Dosage: UNK
  15. VALACYCLOVIR [Concomitant]
     Active Substance: VALACYCLOVIR HYDROCHLORIDE
     Dosage: UNK
  16. ZETIA [Concomitant]
     Active Substance: EZETIMIBE
     Dosage: UNK
  17. GABAPENTIN [Concomitant]
     Active Substance: GABAPENTIN
     Dosage: UNK
  18. NIFEDIPINE [Concomitant]
     Active Substance: NIFEDIPINE
     Dosage: UNK
  19. HYDROCHLOROTHIAZIDE [Concomitant]
     Active Substance: HYDROCHLOROTHIAZIDE
     Dosage: UNK

REACTIONS (3)
  - COVID-19 [Recovered/Resolved]
  - Product dose omission issue [Unknown]
  - Insurance issue [Unknown]

NARRATIVE: CASE EVENT DATE: 20241211
